FAERS Safety Report 8221986-3 (Version None)
Quarter: 2012Q1

REPORT INFORMATION
  Report Type: 
  Country: None (occurrence: None)
  Receive Date: 20120320
  Receipt Date: 20120311
  Transmission Date: 20120608
  Serious: No
  Sender: FDA-Public Use
  Company Number: US-BAYER-2012-025533

PATIENT
  Sex: Female

DRUGS (4)
  1. SOME PRESCRIPTED MEDS [Concomitant]
     Indication: PAIN
  2. ACETAMINOPHEN [Concomitant]
     Indication: PAIN
  3. ALEVE (CAPLET) [Suspect]
     Indication: PAIN
     Dosage: UNK
     Route: 048
  4. IBUPROFEN [Concomitant]
     Indication: PAIN

REACTIONS (1)
  - PAIN [None]
